FAERS Safety Report 14339561 (Version 1)
Quarter: 2017Q4

REPORT INFORMATION
  Report Type: Report from Study
  Country: US (occurrence: US)
  Receive Date: 20171230
  Receipt Date: 20171230
  Transmission Date: 20180321
  Serious: Yes (Death)
  Sender: FDA-Public Use
  Company Number: US-TORRENT-00005161

PATIENT
  Age: 48 Year
  Sex: Female

DRUGS (4)
  1. MORPHINE [Suspect]
     Active Substance: MORPHINE
     Indication: PRODUCT USED FOR UNKNOWN INDICATION
     Dosage: INGESTION PLUS UNKNOWN
  2. TRAMADOL. [Suspect]
     Active Substance: TRAMADOL
     Indication: PRODUCT USED FOR UNKNOWN INDICATION
     Dosage: INGESTION PLUS UNKNOWN
  3. BUTALBITAL [Suspect]
     Active Substance: BUTALBITAL
     Indication: PRODUCT USED FOR UNKNOWN INDICATION
     Dosage: INGESTION PLUS UNKNOWN
  4. LAMOTRIGINE. [Suspect]
     Active Substance: LAMOTRIGINE
     Indication: PRODUCT USED FOR UNKNOWN INDICATION
     Dosage: INGESTION PLUS UNKNOWN

REACTIONS (2)
  - Drug abuse [Fatal]
  - Toxicity to various agents [Fatal]
